FAERS Safety Report 5723064-1 (Version None)
Quarter: 2008Q2

REPORT INFORMATION
  Report Type: 
  Country: None (occurrence: None)
  Receive Date: 20080430
  Receipt Date: 20070411
  Transmission Date: 20081010
  Serious: No
  Sender: FDA-Public Use
  Company Number: US-KINGPHARMUSA00001-K200700282

PATIENT

DRUGS (1)
  1. BICILLIN C-R 900/300 [Suspect]
     Indication: SYPHILIS
     Route: 030

REACTIONS (2)
  - JARISCH-HERXHEIMER REACTION [None]
  - WRONG DRUG ADMINISTERED [None]
